FAERS Safety Report 7246524-3 (Version None)
Quarter: 2011Q1

REPORT INFORMATION
  Report Type: 
  Country: None (occurrence: None)
  Receive Date: 20110127
  Receipt Date: 20110119
  Transmission Date: 20110831
  Serious: No
  Sender: FDA-Public Use
  Company Number: US-US-EMD SERONO, INC.-234807J09USA

PATIENT
  Sex: Male

DRUGS (5)
  1. REBIF [Suspect]
     Indication: MULTIPLE SCLEROSIS
     Route: 058
     Dates: start: 20080108
  2. TYLENOL EXTRA STRENGTH [Concomitant]
     Indication: PREMEDICATION
     Route: 065
  3. NEBULIZER [Concomitant]
     Indication: ASTHMA
  4. SINGULAIR [Concomitant]
     Indication: ASTHMA
  5. INHALER [Concomitant]
     Indication: ASTHMA

REACTIONS (1)
  - STRESS [None]
